FAERS Safety Report 7893339-9 (Version None)
Quarter: 2011Q4

REPORT INFORMATION
  Report Type: 
  Country: None (occurrence: None)
  Receive Date: 20111104
  Receipt Date: 20111027
  Transmission Date: 20120403
  Serious: Yes (Other)
  Sender: FDA-Public Use
  Company Number: IL-ROCHE-GNE298701

PATIENT
  Sex: Male

DRUGS (2)
  1. XOLAIR [Suspect]
     Dosage: 375 MG, SINGLE
     Route: 058
  2. XOLAIR [Suspect]
     Indication: ASTHMA
     Dosage: 375 MG, SINGLE
     Route: 058

REACTIONS (1)
  - ASTHMA [None]
